FAERS Safety Report 25229112 (Version 1)
Quarter: 2025Q2

REPORT INFORMATION
  Report Type: Spontaneous
  Country: US (occurrence: US)
  Receive Date: 20250423
  Receipt Date: 20250423
  Transmission Date: 20250717
  Serious: No
  Sender: ALVOGEN
  Company Number: US-ALVOGEN-2025096179

PATIENT
  Sex: Female

DRUGS (15)
  1. MACROBID [Suspect]
     Active Substance: NITROFURANTOIN\NITROFURANTOIN MONOHYDRATE
     Indication: Product used for unknown indication
  2. ARIMIDEX [Concomitant]
     Active Substance: ANASTROZOLE
     Indication: Product used for unknown indication
  3. ELIQUIS [Concomitant]
     Active Substance: APIXABAN
     Indication: Product used for unknown indication
  4. OSCAL [Concomitant]
     Active Substance: CALCIUM CARBONATE
     Indication: Product used for unknown indication
  5. ATACAND [Concomitant]
     Active Substance: CANDESARTAN CILEXETIL
     Indication: Product used for unknown indication
  6. OMNICEF [Concomitant]
     Active Substance: CEFDINIR
     Indication: Product used for unknown indication
  7. ULORIC [Concomitant]
     Active Substance: FEBUXOSTAT
     Indication: Product used for unknown indication
  8. FLONASE [Concomitant]
     Active Substance: FLUTICASONE PROPIONATE
     Indication: Product used for unknown indication
  9. NEURONTIN [Concomitant]
     Active Substance: GABAPENTIN
     Indication: Product used for unknown indication
  10. CELLCEPT [Concomitant]
     Active Substance: MYCOPHENOLATE MOFETIL
     Indication: Product used for unknown indication
  11. ESBRIET [Concomitant]
     Active Substance: PIRFENIDONE
     Indication: Product used for unknown indication
  12. DELTASONE [Concomitant]
     Active Substance: PREDNISONE
     Indication: Product used for unknown indication
  13. DEMADEX [Concomitant]
     Active Substance: TORSEMIDE
     Indication: Product used for unknown indication
  14. Jadiance [Concomitant]
     Indication: Product used for unknown indication
  15. LDACTONE [Concomitant]
     Indication: Product used for unknown indication

REACTIONS (2)
  - Rash [Unknown]
  - Pruritus [Unknown]
